FAERS Safety Report 21880027 (Version 5)
Quarter: 2024Q2

REPORT INFORMATION
  Report Type: Spontaneous
  Country: CA (occurrence: CA)
  Receive Date: 20230118
  Receipt Date: 20240515
  Transmission Date: 20240716
  Serious: Yes (Hospitalization, Other)
  Sender: FDA-Public Use
  Company Number: CA-VIIV HEALTHCARE LIMITED-CA2023003768

PATIENT
  Age: 70 Year
  Sex: Male

DRUGS (4)
  1. RILPIVIRINE [Suspect]
     Active Substance: RILPIVIRINE
     Indication: HIV infection
     Dosage: UNK, Q2M, CABOTEGRAVIR 600MG/3ML, RILPIVIRINE 900MG/3 ML
     Route: 030
     Dates: start: 20220906
  2. RILPIVIRINE [Suspect]
     Active Substance: RILPIVIRINE
     Dosage: UNK, Q2M, CABOTEGRAVIR 600MG/3ML RILPIVIRINE 900MG/3ML
     Route: 030
  3. CABOTEGRAVIR [Suspect]
     Active Substance: CABOTEGRAVIR
     Indication: HIV infection
     Dosage: UNK, Q2M, CABOTEGRAVIR 600MG/3ML, RILPIVIRINE 900MG/3 ML
     Route: 030
     Dates: start: 20220906
  4. CABOTEGRAVIR [Suspect]
     Active Substance: CABOTEGRAVIR
     Dosage: UNK, Q2M, CABOTEGRAVIR 600MG/3ML RILPIVIRINE 900MG/3ML
     Route: 030

REACTIONS (8)
  - Anal cancer stage III [Not Recovered/Not Resolved]
  - Lung neoplasm malignant [Not Recovered/Not Resolved]
  - Rectal cancer [Unknown]
  - Haematochezia [Not Recovered/Not Resolved]
  - Diarrhoea [Unknown]
  - Dyschezia [Not Recovered/Not Resolved]
  - Vomiting [Unknown]
  - Feeding disorder [Not Recovered/Not Resolved]

NARRATIVE: CASE EVENT DATE: 20221221
